FAERS Safety Report 4439288-X (Version None)
Quarter: 2004Q3

REPORT INFORMATION
  Report Type: 
  Country: None (occurrence: None)
  Receive Date: 20040831
  Receipt Date: 20040816
  Transmission Date: 20050211
  Serious: Yes (Disabling)
  Sender: FDA-Public Use
  Company Number: 200300434

PATIENT
  Age: 32 Year
  Sex: Female
  Weight: 65 kg

DRUGS (4)
  1. BOTOX PURIFIED NEUROTOXIN COMPLEX [Suspect]
     Indication: SKIN WRINKLING
     Dosage: 33 UNITS PRN IM
     Route: 030
  2. MAGNESIUM [Concomitant]
  3. CALCIUM [Concomitant]
  4. COLLAGEN [Concomitant]

REACTIONS (40)
  - ANXIETY DISORDER [None]
  - ARTHRALGIA [None]
  - ASTHENIA [None]
  - ASTHENOPIA [None]
  - CHEST PAIN [None]
  - CHORIORETINITIS [None]
  - CONTUSION [None]
  - DIARRHOEA [None]
  - DIZZINESS [None]
  - DYSAESTHESIA [None]
  - ELECTROCARDIOGRAM ST-T CHANGE [None]
  - EPISTAXIS [None]
  - FATIGUE [None]
  - FEELING ABNORMAL [None]
  - HYPERLIPIDAEMIA [None]
  - HYPOAESTHESIA [None]
  - IMMUNE SYSTEM DISORDER [None]
  - INJECTION SITE HAEMORRHAGE [None]
  - INJECTION SITE PAIN [None]
  - INTERVERTEBRAL DISC DEGENERATION [None]
  - INTERVERTEBRAL DISC PROTRUSION [None]
  - LIPOMA [None]
  - LYMPHOCYTE PERCENTAGE DECREASED [None]
  - MENSTRUAL DISORDER [None]
  - MUSCLE CONTRACTIONS INVOLUNTARY [None]
  - MUSCLE TWITCHING [None]
  - MYCOPLASMA SEROLOGY POSITIVE [None]
  - NAUSEA [None]
  - NERVOUS SYSTEM DISORDER [None]
  - NEUTROPHIL PERCENTAGE INCREASED [None]
  - NUCLEAR MAGNETIC RESONANCE IMAGING BRAIN ABNORMAL [None]
  - OSTEOLYSIS [None]
  - PALPITATIONS [None]
  - PARAESTHESIA [None]
  - PERIPHERAL SENSORY NEUROPATHY [None]
  - PRURITUS [None]
  - RETINAL DEPOSITS [None]
  - TREMOR [None]
  - VIRAL INFECTION [None]
  - VISION BLURRED [None]
